FAERS Safety Report 18651505 (Version 1)
Quarter: 2020Q4

REPORT INFORMATION
  Report Type: Spontaneous
  Country: US (occurrence: US)
  Receive Date: 20201223
  Receipt Date: 20201223
  Transmission Date: 20210114
  Serious: Yes (Death, Other)
  Sender: FDA-Public Use
  Company Number: US-SA-2020SA362147

PATIENT

DRUGS (1)
  1. DIPHENHYDRAMINE. [Suspect]
     Active Substance: DIPHENHYDRAMINE
     Dosage: 7.5 G, DRUG OVERDOSE

REACTIONS (4)
  - Seizure [Fatal]
  - Haemodynamic instability [Fatal]
  - Overdose [Fatal]
  - Conduction disorder [Fatal]
